FAERS Safety Report 9852308 (Version 1)
Quarter: 2014Q1

REPORT INFORMATION
  Report Type: Spontaneous
  Country: NL (occurrence: NL)
  Receive Date: 20140129
  Receipt Date: 20140129
  Transmission Date: 20141002
  Serious: Yes (Hospitalization, Other)
  Sender: FDA-Public Use
  Company Number: NL-ELI_LILLY_AND_COMPANY-NL201401008153

PATIENT
  Sex: Male

DRUGS (2)
  1. ZYPREXA [Suspect]
     Indication: PANIC ATTACK
     Dosage: 15 MG, UNKNOWN
     Route: 065
     Dates: start: 1997
  2. ZYPREXA [Suspect]
     Dosage: 20 MG, UNKNOWN
     Route: 065
     Dates: end: 2009

REACTIONS (5)
  - Weight increased [Recovering/Resolving]
  - Delusion [Recovered/Resolved]
  - Migraine [Recovered/Resolved]
  - Drug withdrawal syndrome [Recovered/Resolved]
  - Off label use [Recovered/Resolved]
